FAERS Safety Report 9189859 (Version 5)
Quarter: 2016Q2

REPORT INFORMATION
  Report Type: Spontaneous
  Country: FI (occurrence: FI)
  Receive Date: 20130326
  Receipt Date: 20160422
  Transmission Date: 20160815
  Serious: Yes (Death, Hospitalization)
  Sender: FDA-Public Use
  Company Number: FI-BAYER-2013-036478

PATIENT
  Age: 50 Year
  Sex: Male

DRUGS (10)
  1. XATRAL [Concomitant]
     Active Substance: ALFUZOSIN
     Indication: PROSTATOMEGALY
     Dosage: 10 MG, QD
  2. FRAGMIN [Concomitant]
     Active Substance: DALTEPARIN SODIUM
     Indication: JUGULAR VEIN THROMBOSIS
  3. CALCICHEW-D3 FORTE [Concomitant]
     Active Substance: CALCIUM\CHOLECALCIFEROL
  4. NEXAVAR [Suspect]
     Active Substance: SORAFENIB
     Indication: THYROID CANCER
     Dosage: UNK
     Route: 048
     Dates: start: 20120709, end: 20120718
  5. NEXAVAR [Suspect]
     Active Substance: SORAFENIB
     Indication: THYROID CANCER
     Dosage: DAILY DOSE 800 MG
     Route: 048
     Dates: start: 20111115, end: 20121119
  6. NEXAVAR [Suspect]
     Active Substance: SORAFENIB
     Indication: THYROID CANCER
     Dosage: UNK
     Route: 048
  7. NEXAVAR [Suspect]
     Active Substance: SORAFENIB
     Indication: THYROID CANCER
     Dosage: DAILY DOSE 800 MG
     Route: 048
     Dates: start: 20120621, end: 20120626
  8. NEXAVAR [Suspect]
     Active Substance: SORAFENIB
     Indication: THYROID CANCER
     Dosage: UNK
     Route: 048
     Dates: start: 201207
  9. THYROXIN [Concomitant]
     Active Substance: LEVOTHYROXINE
     Dosage: DAILY DOSE .1 MG
  10. ORLOC [Concomitant]
     Active Substance: BISOPROLOL FUMARATE
     Indication: PALPITATIONS
     Dosage: 5 MG, QD

REACTIONS (16)
  - Influenza like illness [None]
  - Gastric disorder [None]
  - Haemoptysis [Recovered/Resolved]
  - Thyroid cancer metastatic [None]
  - Body temperature increased [None]
  - Febrile infection [None]
  - Infection [None]
  - Chest pain [None]
  - Rhinorrhoea [None]
  - C-reactive protein increased [Not Recovered/Not Resolved]
  - Pulmonary embolism [Fatal]
  - Pyrexia [None]
  - Pyrexia [None]
  - Dyspnoea [None]
  - Product use issue [None]
  - Dyspnoea exertional [None]

NARRATIVE: CASE EVENT DATE: 201111
